FAERS Safety Report 24453107 (Version 1)
Quarter: 2024Q4

REPORT INFORMATION
  Report Type: Spontaneous
  Country: US (occurrence: US)
  Receive Date: 20241017
  Receipt Date: 20241017
  Transmission Date: 20250114
  Serious: No
  Sender: SUNOVION
  Company Number: US-SMPA-202404-URV-000615AA

PATIENT
  Age: 62 Year
  Sex: Male
  Weight: 92.971 kg

DRUGS (2)
  1. GEMTESA [Suspect]
     Active Substance: VIBEGRON
     Indication: Product used for unknown indication
     Dosage: 1 TAB, QD, AT NIGHT AROUND MIDNIGHT
     Route: 065
     Dates: start: 20240423
  2. TADALAFIL [Concomitant]
     Active Substance: TADALAFIL
     Indication: Product used for unknown indication
     Dosage: 5 MG, QD, OVER MORE THAN 10 YEARS
     Route: 065

REACTIONS (1)
  - Hot flush [Recovered/Resolved]
